FAERS Safety Report 8258378-7 (Version None)
Quarter: 2012Q2

REPORT INFORMATION
  Report Type: 
  Country: None (occurrence: None)
  Receive Date: 20120404
  Receipt Date: 20120330
  Transmission Date: 20120825
  Serious: Yes (Death)
  Sender: FDA-Public Use
  Company Number: CO-PFIZER INC-2012083156

PATIENT
  Sex: Male

DRUGS (3)
  1. LIPITOR [Suspect]
     Dosage: 10 MG, UNK
     Dates: start: 20040922
  2. METOPROLOL [Concomitant]
     Dosage: 50 MG, 1X/DAY
  3. LOSARTAN [Concomitant]
     Dosage: 50 MG, 1X/DAY

REACTIONS (1)
  - DEATH [None]
